FAERS Safety Report 7748116-6 (Version None)
Quarter: 2011Q3

REPORT INFORMATION
  Report Type: 
  Country: None (occurrence: None)
  Receive Date: 20110913
  Receipt Date: 20110831
  Transmission Date: 20111222
  Serious: Yes (Hospitalization)
  Sender: FDA-Public Use
  Company Number: JP-CEPHALON-2011004805

PATIENT
  Sex: Female
  Weight: 53 kg

DRUGS (10)
  1. TEPRENONE [Concomitant]
  2. ACETAMINOPHEN [Concomitant]
     Dates: end: 20110118
  3. POVIDONE IODINE [Concomitant]
     Dates: end: 20110214
  4. GRANISETRON HYDROCHLORIDE [Concomitant]
  5. SULFAMETHOXAZOLE AND TRIMETHOPRIM [Concomitant]
     Dates: start: 20110111
  6. BROTIZOLAM [Concomitant]
  7. SENNA LEAF [Concomitant]
     Dates: end: 20110124
  8. HEPARIN SODIUM [Concomitant]
  9. TREANDA [Suspect]
     Indication: B-CELL LYMPHOMA
     Route: 042
     Dates: start: 20110111
  10. LEVOFLOXACIN [Concomitant]
     Dates: start: 20110118, end: 20110118

REACTIONS (2)
  - ANGIOPATHY [None]
  - NEUTROPHIL COUNT DECREASED [None]
